FAERS Safety Report 4364964-7 (Version None)
Quarter: 2004Q2

REPORT INFORMATION
  Report Type: 
  Country: None (occurrence: None)
  Receive Date: 20040521
  Receipt Date: 20040513
  Transmission Date: 20050107
  Serious: Yes (Other)
  Sender: FDA-Public Use
  Company Number: US-JNJFOC-20040503138

PATIENT
  Age: 42 Year
  Sex: Female
  Weight: 65.7716 kg

DRUGS (5)
  1. REMICADE [Suspect]
     Indication: RHEUMATOID ARTHRITIS
     Dosage: 400 MG INTRAVENOUS
     Route: 042
     Dates: start: 20030201
  2. ARAVA [Concomitant]
  3. CAPTOPRIL [Concomitant]
  4. ADVAIR (SERETIDE MITE) [Concomitant]
  5. VENTOLIN [Concomitant]

REACTIONS (4)
  - DYSPNOEA [None]
  - EOSINOPHILIA [None]
  - OEDEMA [None]
  - PULMONARY MASS [None]
